FAERS Safety Report 9901430 (Version 2)
Quarter: 2014Q2

REPORT INFORMATION
  Report Type: Spontaneous
  Country: IT (occurrence: IT)
  Receive Date: 20140217
  Receipt Date: 20140414
  Transmission Date: 20141212
  Serious: Yes (Life-Threatening)
  Sender: FDA-Public Use
  Company Number: IT-NOVOPROD-399851

PATIENT
  Age: 43 Year
  Sex: Female

DRUGS (2)
  1. NOVORAPID FLEXPEN [Suspect]
     Indication: DIABETES MELLITUS
     Dosage: 40 U, QD
     Route: 065
     Dates: start: 20130101
  2. LANTUS [Suspect]
     Indication: DIABETES MELLITUS
     Dosage: 30 U
     Route: 065
     Dates: start: 20130101

REACTIONS (2)
  - Road traffic accident [Recovered/Resolved]
  - Hypoglycaemia [Recovered/Resolved]
